FAERS Safety Report 7039855-3 (Version None)
Quarter: 2010Q4

REPORT INFORMATION
  Report Type: 
  Country: None (occurrence: None)
  Receive Date: 20101012
  Receipt Date: 20101005
  Transmission Date: 20110411
  Serious: Yes (Other)
  Sender: FDA-Public Use
  Company Number: US-AMGEN-QUU429136

PATIENT
  Sex: Female

DRUGS (3)
  1. NPLATE [Suspect]
     Indication: IDIOPATHIC THROMBOCYTOPENIC PURPURA
     Dates: start: 20090302
  2. NPLATE [Suspect]
     Indication: THROMBOCYTOPENIA
  3. PREDNISONE [Concomitant]
     Route: 048

REACTIONS (1)
  - THERAPEUTIC RESPONSE DECREASED [None]
